FAERS Safety Report 16155968 (Version 1)
Quarter: 2019Q2

REPORT INFORMATION
  Report Type: Spontaneous
  Country: FR (occurrence: FR)
  Receive Date: 20190404
  Receipt Date: 20190404
  Transmission Date: 20190711
  Serious: Yes (Hospitalization)
  Sender: FDA-Public Use
  Company Number: FR-TEVA-2019-FR-1033253

PATIENT
  Age: 70 Year
  Sex: Male
  Weight: 79 kg

DRUGS (2)
  1. CEFTRIAXONE SODIQUE [Suspect]
     Active Substance: CEFTRIAXONE SODIUM
     Indication: OSTEOCHONDRITIS
     Dosage: 6 GRAM DAILY;
     Route: 048
     Dates: start: 20190124, end: 20190204
  2. AMOXICILLINE [Suspect]
     Active Substance: AMOXICILLIN
     Indication: OSTEOCHONDRITIS
     Dosage: 9 GRAM DAILY;
     Route: 048
     Dates: start: 20190124, end: 20190204

REACTIONS (2)
  - Haematuria [Recovered/Resolved]
  - Acute kidney injury [Recovered/Resolved]

NARRATIVE: CASE EVENT DATE: 20190204
